FAERS Safety Report 4374881-4 (Version None)
Quarter: 2004Q2

REPORT INFORMATION
  Report Type: 
  Country: None (occurrence: None)
  Receive Date: 20040603
  Receipt Date: 20040209
  Transmission Date: 20050107
  Serious: Yes (Other)
  Sender: FDA-Public Use
  Company Number: 200320683US

PATIENT
  Sex: Male

DRUGS (2)
  1. LOVENOX [Suspect]
     Dosage: 90 MG
  2. WARFARIN SODIUM [Concomitant]

REACTIONS (1)
  - EAR HAEMORRHAGE [None]
